FAERS Safety Report 11485957 (Version 1)
Quarter: 2015Q3

REPORT INFORMATION
  Report Type: Spontaneous
  Country: US (occurrence: US)
  Receive Date: 20150910
  Receipt Date: 20150910
  Transmission Date: 20151125
  Serious: Yes (Other)
  Sender: FDA-Public Use
  Company Number: US-AMGEN-USASP2015092214

PATIENT
  Sex: Female

DRUGS (2)
  1. HUMIRA [Suspect]
     Active Substance: ADALIMUMAB
     Indication: PRODUCT USED FOR UNKNOWN INDICATION
     Dosage: UNK
     Route: 065
  2. ENBREL [Suspect]
     Active Substance: ETANERCEPT
     Indication: VASCULITIS
     Dosage: UNK
     Route: 065

REACTIONS (6)
  - Injection site pustule [Unknown]
  - Cystitis [Unknown]
  - Off label use [Unknown]
  - Drug ineffective [Unknown]
  - Lupus-like syndrome [Unknown]
  - Injection site swelling [Unknown]
